FAERS Safety Report 15007021 (Version 1)
Quarter: 2018Q2

REPORT INFORMATION
  Report Type: Spontaneous
  Country: US (occurrence: US)
  Receive Date: 20180521
  Receipt Date: 20180521
  Transmission Date: 20180711
  Serious: Yes (Hospitalization)
  Sender: FDA-Public Use
  Company Number: None

PATIENT
  Age: 65 Year

DRUGS (27)
  1. XOLAIR [Suspect]
     Active Substance: OMALIZUMAB
     Indication: ASTHMA
     Route: 058
     Dates: start: 20150508
  2. ZYRTEC [Concomitant]
     Active Substance: CETIRIZINE HYDROCHLORIDE
  3. PREDNISONE. [Concomitant]
     Active Substance: PREDNISONE
  4. DILTIAZEM. [Concomitant]
     Active Substance: DILTIAZEM
  5. CALCIUMO [Concomitant]
  6. PROTONIX [Concomitant]
     Active Substance: PANTOPRAZOLE SODIUM
  7. MAGNEEIND [Concomitant]
  8. LISINOPRIL. [Concomitant]
     Active Substance: LISINOPRIL
  9. ISOSORB MONO [Concomitant]
     Active Substance: ISOSORBIDE MONONITRATE
  10. VITAMIN D3 [Concomitant]
     Active Substance: CHOLECALCIFEROL
  11. VENTOLIN [Concomitant]
     Active Substance: ALBUTEROL SULFATE
  12. NYSTATIN. [Concomitant]
     Active Substance: NYSTATIN
  13. METHIMAZOLE TAB [Concomitant]
  14. INSULIN SYRG [Concomitant]
  15. FLUTICASONE SPR [Concomitant]
  16. WARFARIN [Concomitant]
     Active Substance: WARFARIN
  17. ROSUVASTATIN. [Concomitant]
     Active Substance: ROSUVASTATIN
  18. EPIPEN [Concomitant]
     Active Substance: EPINEPHRINE
  19. ENOXAPARIN [Concomitant]
     Active Substance: ENOXAPARIN
  20. SINGULAIR [Concomitant]
     Active Substance: MONTELUKAST SODIUM
  21. BREO ELLIPTAINH [Concomitant]
  22. AUGMENTIN [Concomitant]
     Active Substance: AMOXICILLIN\CLAVULANATE POTASSIUM
  23. TRIAMCINOLON [Concomitant]
  24. REFRESH TEAR DRO [Concomitant]
  25. LIDOCAINE. [Concomitant]
     Active Substance: LIDOCAINE
  26. AMOXICILLIN. [Concomitant]
     Active Substance: AMOXICILLIN
  27. ADVAIR DISKU AER [Concomitant]
     Indication: ASTHMA

REACTIONS (3)
  - Asthma [None]
  - Cough [None]
  - Memory impairment [None]

NARRATIVE: CASE EVENT DATE: 20180514
